FAERS Safety Report 9631048 (Version 1)
Quarter: 2013Q4

REPORT INFORMATION
  Report Type: Spontaneous
  Country: US (occurrence: None)
  Receive Date: 20131015
  Receipt Date: 20131015
  Transmission Date: 20140711
  Serious: Yes (Other)
  Sender: FDA-Public Use
  Company Number: ADR-2013-01249

PATIENT
  Age: 71 Year
  Sex: Female

DRUGS (13)
  1. BACLOFEN [Suspect]
     Dosage: DAY
  2. DILAUDID [Suspect]
     Dosage: DAY
  3. BUPIVACAINE [Suspect]
     Dosage: DAY
  4. CLONIDINE [Suspect]
     Dosage: DAY
  5. TRAZODONE [Suspect]
     Dosage: BY MOUTH NIGHTLY
  6. PRAMIPEXOLE [Suspect]
     Dosage: BY MOUTH 3 TIMES DAILY
  7. OLMESARTAN-HYDROCHLOROTHIAZIDE [Suspect]
     Dosage: BY MOUTH DAILY
  8. LEVOTHYROXINE (SYNTHROID, LEVOTHROID ) [Suspect]
     Dosage: BY MOUTH EVERY MORNING BEFORE BREAKFAST
  9. GLUCOSAMINE-CHONDROITIN [Suspect]
     Dosage: BY MOUTH 3 TIMES DAILY
  10. COLESTIPOL (COLESTID) [Suspect]
     Dosage: 1G BY MOUTH 2 TIMES DAILY
  11. CALCIUM CARBONATE-VITAMIN D (CALCIUM 600 + D3 PO) [Suspect]
     Dosage: BY MOUTH DAILY
  12. ASCORBIC ACID (VITAMIN C) [Suspect]
     Dosage: BY MOUTH DAILY.
  13. DILAUDID (ORAL) [Suspect]
     Route: 048

REACTIONS (6)
  - Diarrhoea [None]
  - Back pain [None]
  - Arthralgia [None]
  - Drug withdrawal syndrome [None]
  - Pain [None]
  - Bursitis [None]
